FAERS Safety Report 5310502-1 (Version None)
Quarter: 2007Q2

REPORT INFORMATION
  Report Type: 
  Country: None (occurrence: None)
  Receive Date: 20070427
  Receipt Date: 20070418
  Transmission Date: 20071010
  Serious: Yes (Hospitalization)
  Sender: FDA-Public Use
  Company Number: AU-GILEAD-2007-0011947

PATIENT
  Sex: Male

DRUGS (3)
  1. VIREAD [Suspect]
     Indication: HIV INFECTION
  2. VIREAD [Suspect]
     Indication: HEPATITIS B
  3. LAMIVUDINE [Concomitant]
     Indication: HIV INFECTION

REACTIONS (2)
  - HEPATIC FUNCTION ABNORMAL [None]
  - IMMUNE RECONSTITUTION SYNDROME [None]
